FAERS Safety Report 17757392 (Version 1)
Quarter: 2020Q2

REPORT INFORMATION
  Report Type: Report from Study
  Country: CO (occurrence: CO)
  Receive Date: 20200507
  Receipt Date: 20200507
  Transmission Date: 20200714
  Serious: Yes (Hospitalization)
  Sender: FDA-Public Use
  Company Number: NVSC2018CO003726

PATIENT
  Sex: Female

DRUGS (1)
  1. EXJADE [Suspect]
     Active Substance: DEFERASIROX
     Indication: IRON METABOLISM DISORDER
     Dosage: 500 MG, QD (1 OF 500 MG DAILY)
     Route: 065

REACTIONS (3)
  - Anaemia [Unknown]
  - Haemoglobin decreased [Unknown]
  - Pain [Unknown]
